FAERS Safety Report 4806831-8 (Version None)
Quarter: 2005Q4

REPORT INFORMATION
  Report Type: 
  Country: None (occurrence: None)
  Receive Date: 20051024
  Receipt Date: 20051017
  Transmission Date: 20060501
  Serious: Yes (Hospitalization)
  Sender: FDA-Public Use
  Company Number: US-BOEHRINGER INGELHEIM PHARMACEUTICALS, INC.-2005-BP-18481BP

PATIENT
  Age: 76 Year
  Sex: Female

DRUGS (13)
  1. SPIRIVA [Suspect]
     Indication: CARDIAC FAILURE ACUTE
     Route: 055
     Dates: start: 20050801
  2. ASPIRIN [Concomitant]
     Indication: CARDIAC DISORDER
  3. NITROTAB [Concomitant]
     Indication: CARDIAC FAILURE
  4. IMDUR [Concomitant]
     Indication: CARDIAC FAILURE
  5. CLONIDINE [Concomitant]
     Indication: HYPERTENSION
  6. COREG [Concomitant]
     Indication: CARDIAC FAILURE
  7. NORVASC [Concomitant]
     Indication: HYPERTENSION
  8. DIOVAN [Concomitant]
     Indication: HYPERTENSION
  9. ALDACTONE [Concomitant]
     Indication: CARDIAC FAILURE
  10. LASIX [Concomitant]
     Indication: CARDIAC FAILURE
  11. NEXIUM [Concomitant]
     Indication: GASTROOESOPHAGEAL REFLUX DISEASE
  12. ZETIA [Concomitant]
     Indication: BLOOD CHOLESTEROL INCREASED
  13. ADVICOR [Concomitant]
     Indication: BLOOD CHOLESTEROL INCREASED

REACTIONS (1)
  - HYPERTENSION [None]
